FAERS Safety Report 6415358-1 (Version None)
Quarter: 2009Q4

REPORT INFORMATION
  Report Type: 
  Country: None (occurrence: None)
  Receive Date: 20091027
  Receipt Date: 20091014
  Transmission Date: 20100525
  Serious: Yes (Death, Hospitalization)
  Sender: FDA-Public Use
  Company Number: DE-JNJFOC-20091005149

PATIENT
  Age: 60 Year
  Sex: Female

DRUGS (2)
  1. INFLIXIMAB [Suspect]
     Dosage: 6TH INFUSION
     Route: 042
  2. INFLIXIMAB [Suspect]
     Indication: RHEUMATOID ARTHRITIS
     Route: 042

REACTIONS (10)
  - ANAEMIA [None]
  - BRAIN HERNIATION [None]
  - CHOLECYSTITIS ACUTE [None]
  - GASTRIC ULCER [None]
  - INTRACRANIAL VENOUS SINUS THROMBOSIS [None]
  - LISTERIA SEPSIS [None]
  - LUNG INFILTRATION [None]
  - MENINGITIS LISTERIA [None]
  - MULTI-ORGAN FAILURE [None]
  - PLATELET COUNT DECREASED [None]
